FAERS Safety Report 6569158-2 (Version None)
Quarter: 2010Q1

REPORT INFORMATION
  Report Type: 
  Country: None (occurrence: None)
  Receive Date: 20100201
  Receipt Date: 20100201
  Transmission Date: 20100710
  Serious: Yes (Other)
  Sender: FDA-Public Use
  Company Number: None

PATIENT
  Age: 63 Year
  Sex: Female
  Weight: 77.1115 kg

DRUGS (2)
  1. NAPROXEN [Suspect]
     Indication: CALCINOSIS
     Dosage: ONE TABLET EVERY 12 HRS PRN PO
     Route: 048
     Dates: start: 20100126, end: 20100131
  2. NAPROXEN [Suspect]
     Indication: PAIN
     Dosage: ONE TABLET EVERY 12 HRS PRN PO
     Route: 048
     Dates: start: 20100126, end: 20100131

REACTIONS (1)
  - RASH [None]
